FAERS Safety Report 13850547 (Version 4)
Quarter: 2017Q4

REPORT INFORMATION
  Report Type: Spontaneous
  Country: JP (occurrence: JP)
  Receive Date: 20170809
  Receipt Date: 20171130
  Transmission Date: 20180320
  Serious: Yes (Hospitalization)
  Sender: FDA-Public Use
  Company Number: JP-EISAI MEDICAL RESEARCH-EC-2017-029615

PATIENT
  Age: 25 Year
  Sex: Female
  Weight: 41 kg

DRUGS (5)
  1. LAMICTAL [Concomitant]
     Active Substance: LAMOTRIGINE
     Indication: MYOCLONIC EPILEPSY
     Route: 048
  2. VIMPAT [Concomitant]
     Active Substance: LACOSAMIDE
     Indication: MYOCLONIC EPILEPSY
     Route: 048
  3. VALERIN [Concomitant]
     Active Substance: VALPROATE SODIUM
     Indication: MYOCLONIC EPILEPSY
     Dosage: 10 ML
     Route: 048
  4. FYCOMPA [Suspect]
     Active Substance: PERAMPANEL
     Route: 048
     Dates: start: 20170802, end: 20170811
  5. FYCOMPA [Suspect]
     Active Substance: PERAMPANEL
     Indication: MYOCLONIC EPILEPSY
     Route: 048
     Dates: start: 20170710, end: 20170715

REACTIONS (1)
  - Hyponatraemia [Unknown]

NARRATIVE: CASE EVENT DATE: 20170714
